FAERS Safety Report 5495342-5 (Version None)
Quarter: 2007Q4

REPORT INFORMATION
  Report Type: 
  Country: None (occurrence: None)
  Receive Date: 20071024
  Receipt Date: 20071012
  Transmission Date: 20080405
  Serious: Yes (Other)
  Sender: FDA-Public Use
  Company Number: US-PFIZER INC-2007086313

PATIENT
  Sex: Female
  Weight: 63.636 kg

DRUGS (7)
  1. NORVASC [Suspect]
     Indication: CARDIOMYOPATHY
     Route: 048
  2. HYDROCHLOROTHIAZIDE [Concomitant]
     Dosage: DAILY DOSE:12.5MG
  3. LEVOTHROID [Concomitant]
     Dosage: DAILY DOSE:1MG
  4. LISINOPRIL [Concomitant]
     Dosage: DAILY DOSE:40MG
  5. VITAMIN CAP [Concomitant]
  6. IRON [Concomitant]
  7. FOLIC ACID [Concomitant]

REACTIONS (2)
  - HEPATIC CIRRHOSIS [None]
  - HEPATIC NEOPLASM [None]
